FAERS Safety Report 8468678 (Version 2)
Quarter: 2012Q4

REPORT INFORMATION
  Report Type: 
  Country: US (occurrence: US)
  Receive Date: 20120320
  Receipt Date: 20121207
  Transmission Date: 20130627
  Serious: Yes (Hospitalization, Other)
  Sender: FDA-Public Use
  Company Number: US-ELI_LILLY_AND_COMPANY-US201203004785

PATIENT
  Age: 53 None
  Sex: Female
  Weight: 104.31 kg

DRUGS (4)
  1. BYETTA [Suspect]
     Indication: TYPE 2 DIABETES MELLITUS
     Dosage: 5 ug, bid
     Route: 058
     Dates: start: 200803
  2. BYETTA [Suspect]
     Dosage: 10 ug, bid
     Route: 058
     Dates: start: 200804
  3. METFORMIN [Concomitant]
     Indication: TYPE 2 DIABETES MELLITUS
     Dosage: 1000 mg, qd
     Route: 048
  4. SYNTHROID [Concomitant]
     Dosage: 150 ug, each morning
     Route: 048

REACTIONS (14)
  - Cholecystectomy [Recovered/Resolved]
  - Cholecystitis infective [Recovered/Resolved]
  - Cholelithiasis [Recovered/Resolved]
  - Thyroidectomy [Recovered/Resolved]
  - Goitre [Recovered/Resolved]
  - Glycosylated haemoglobin increased [Unknown]
  - Menopause [Unknown]
  - Gallbladder pain [Recovered/Resolved]
  - Hot flush [Not Recovered/Not Resolved]
  - Underdose [Recovered/Resolved]
  - Weight increased [Not Recovered/Not Resolved]
  - Weight decreased [Recovered/Resolved]
  - Nausea [Unknown]
  - Decreased appetite [Not Recovered/Not Resolved]
